FAERS Safety Report 5881513-2 (Version None)
Quarter: 2008Q3

REPORT INFORMATION
  Report Type: 
  Country: None (occurrence: None)
  Receive Date: 20080911
  Receipt Date: 20080908
  Transmission Date: 20090109
  Serious: Yes (Hospitalization)
  Sender: FDA-Public Use
  Company Number: CERZ-1000362

PATIENT
  Age: 62 Year
  Sex: Female

DRUGS (2)
  1. CEREZYME [Suspect]
     Indication: GAUCHER'S DISEASE
     Dosage: 3900 U, Q2W, INTRAVENOUS
     Route: 042
     Dates: start: 19970401
  2. UNSPECIFIED BLOOD PRESSURE MEDICATION (UNSPECIFIED BLOOD PRESSURE MEDI [Concomitant]

REACTIONS (3)
  - COLITIS ISCHAEMIC [None]
  - SPINAL DISORDER [None]
  - THROMBOSIS [None]
